FAERS Safety Report 17140618 (Version 2)
Quarter: 2020Q1

REPORT INFORMATION
  Report Type: Spontaneous
  Country: DE (occurrence: DE)
  Receive Date: 20191211
  Receipt Date: 20200125
  Transmission Date: 20200409
  Serious: Yes (Death, Other)
  Sender: FDA-Public Use
  Company Number: NVSC2019DE059344

PATIENT
  Age: 63 Year

DRUGS (15)
  1. DOCETAXEL. [Suspect]
     Active Substance: DOCETAXEL
     Indication: BONE CANCER
     Dosage: UNK, 2 CYCLES
     Route: 065
     Dates: start: 20190218, end: 20190311
  2. NINTEDANIB [Suspect]
     Active Substance: NINTEDANIB
     Indication: NEOPLASM
     Dosage: UNK
     Route: 065
     Dates: start: 2019
  3. NINTEDANIB [Suspect]
     Active Substance: NINTEDANIB
     Indication: LUNG CARCINOMA CELL TYPE UNSPECIFIED STAGE IV
     Dosage: UNK, 2 CYCLES
     Route: 065
     Dates: start: 20190218, end: 20190311
  4. CISPLATIN. [Suspect]
     Active Substance: CISPLATIN
     Indication: BONE CANCER
     Dosage: 3 CYCLES
     Route: 065
  5. PEMBROLIZUMAB. [Suspect]
     Active Substance: PEMBROLIZUMAB
     Indication: BONE CANCER
  6. PEMETREXED DISODIUM [Suspect]
     Active Substance: PEMETREXED DISODIUM
     Indication: LUNG CARCINOMA CELL TYPE UNSPECIFIED STAGE IV
  7. CISPLATIN. [Suspect]
     Active Substance: CISPLATIN
     Indication: NEOPLASM
     Dosage: UNK, CYCLIC (3 CYCLES)
     Route: 065
     Dates: start: 20190218, end: 20190329
  8. PEMBROLIZUMAB. [Suspect]
     Active Substance: PEMBROLIZUMAB
     Indication: NEOPLASM
     Dosage: UNK, CYCLIC (3 CYCLES)
     Route: 065
     Dates: start: 20190218, end: 20190329
  9. PEMETREXED DISODIUM [Suspect]
     Active Substance: PEMETREXED DISODIUM
     Indication: NEOPLASM
     Dosage: UNK, CYCLIC (3 CYCLES)
     Route: 065
     Dates: start: 20190218, end: 20190329
  10. PEMBROLIZUMAB. [Suspect]
     Active Substance: PEMBROLIZUMAB
     Indication: LUNG CARCINOMA CELL TYPE UNSPECIFIED STAGE IV
     Dosage: UNK, 3 CYCLES
     Route: 065
  11. DOCETAXEL. [Suspect]
     Active Substance: DOCETAXEL
     Indication: NEOPLASM
     Dosage: UNK
     Route: 065
     Dates: start: 2019
  12. DOCETAXEL. [Suspect]
     Active Substance: DOCETAXEL
     Indication: LUNG CARCINOMA CELL TYPE UNSPECIFIED STAGE IV
  13. NINTEDANIB [Suspect]
     Active Substance: NINTEDANIB
     Indication: BONE CANCER
  14. PEMETREXED DISODIUM [Suspect]
     Active Substance: PEMETREXED DISODIUM
     Indication: BONE CANCER
     Dosage: 3 CYCLES
     Route: 065
  15. CISPLATIN. [Suspect]
     Active Substance: CISPLATIN
     Indication: LUNG CARCINOMA CELL TYPE UNSPECIFIED STAGE IV

REACTIONS (3)
  - Decreased appetite [Unknown]
  - Malignant neoplasm progression [Unknown]
  - Death [Fatal]

NARRATIVE: CASE EVENT DATE: 2019
